FAERS Safety Report 17278481 (Version 3)
Quarter: 2020Q1

REPORT INFORMATION
  Report Type: Spontaneous
  Country: SG (occurrence: SG)
  Receive Date: 20200116
  Receipt Date: 20200120
  Transmission Date: 20200409
  Serious: Yes (Death, Life-Threatening, Hospitalization, Other)
  Sender: FDA-Public Use
  Company Number: SG-PFIZER INC-2020013009

PATIENT
  Age: 81 Year
  Sex: Female

DRUGS (1)
  1. HYDROCORTISONE SODIUM SUCCINATE [Suspect]
     Active Substance: HYDROCORTISONE SODIUM SUCCINATE
     Dosage: 100 MG, 3X/DAY (8-HOURLY)
     Route: 042

REACTIONS (6)
  - Enterobacter pneumonia [Fatal]
  - Strongyloidiasis [Fatal]
  - CNS ventriculitis [Fatal]
  - Enterobacter infection [Fatal]
  - Gastric ulcer [Unknown]
  - Upper gastrointestinal haemorrhage [Unknown]
